FAERS Safety Report 25364471 (Version 1)
Quarter: 2025Q2

REPORT INFORMATION
  Report Type: Spontaneous
  Country: DE (occurrence: DE)
  Receive Date: 20250527
  Receipt Date: 20250527
  Transmission Date: 20250717
  Serious: Yes (Other)
  Sender: BOEHRINGER INGELHEIM
  Company Number: DE-BoehringerIngelheim-2025-BI-072420

PATIENT

DRUGS (1)
  1. OFEV [Suspect]
     Active Substance: NINTEDANIB
     Indication: Idiopathic pulmonary fibrosis
     Dates: start: 202504, end: 20250519

REACTIONS (6)
  - Idiopathic pulmonary fibrosis [Unknown]
  - Arthralgia [Unknown]
  - Decreased appetite [Unknown]
  - Malaise [Unknown]
  - Pleural effusion [Unknown]
  - Back pain [Unknown]
